FAERS Safety Report 20449262 (Version 1)
Quarter: 2022Q1

REPORT INFORMATION
  Report Type: Spontaneous
  Country: US (occurrence: US)
  Receive Date: 20220209
  Receipt Date: 20220209
  Transmission Date: 20220423
  Serious: Yes (Hospitalization, Other)
  Sender: FDA-Public Use
  Company Number: US-RECORDATI-2022000436

PATIENT
  Age: 2 Year
  Sex: Male
  Weight: 13.6 kg

DRUGS (6)
  1. DACTINOMYCIN [Suspect]
     Active Substance: DACTINOMYCIN
     Indication: Product used for unknown indication
     Dosage: 0.05 MG/KG OR PER DOSING TABLE OVER 1-5 MIN ON DAY 1 OF CYCLES 1 AND 3
     Route: 042
     Dates: start: 20180823, end: 20180823
  2. TEMSIROLIMUS [Suspect]
     Active Substance: TEMSIROLIMUS
     Indication: Product used for unknown indication
     Dosage: 15 MILLIGRAM/SQ. METER, UNK, OVER 30-60 MIN ON DAYS 1, 8 AND 15
     Route: 042
     Dates: start: 20180823, end: 20180823
  3. VINCRISTINE SULFATE [Suspect]
     Active Substance: VINCRISTINE SULFATE
     Indication: Product used for unknown indication
     Dosage: 1.5 MG/M2 OR PER DOSING TABLE OVER 1 MIN OR INFUSION VIA MINIBAG ON DAYS 1, 8 AND 15
     Route: 042
     Dates: start: 20180823, end: 20180823
  4. CYCLOPHOSPHAMIDE [Suspect]
     Active Substance: CYCLOPHOSPHAMIDE
     Indication: Product used for unknown indication
     Dosage: 1200 MG/M2 OR PER DOSING TABLE OVER 60 MIN ON DAY 1 OF CYCLES 1 AND 3
     Route: 042
     Dates: start: 20180823, end: 20180824
  5. CEFAZOLIN [Concomitant]
     Active Substance: CEFAZOLIN
     Indication: Antibiotic prophylaxis
     Dosage: UNK
     Route: 042
     Dates: start: 20180828
  6. CEFEPIME [Concomitant]
     Active Substance: CEFEPIME HYDROCHLORIDE
     Indication: Product used for unknown indication
     Dosage: UNK UNK, UNK
     Route: 042
     Dates: start: 20180830

REACTIONS (2)
  - Device related infection [Not Recovered/Not Resolved]
  - Neutrophil count decreased [Not Recovered/Not Resolved]

NARRATIVE: CASE EVENT DATE: 20180829
